FAERS Safety Report 20428382 (Version 1)
Quarter: 2022Q1

REPORT INFORMATION
  Report Type: Spontaneous
  Country: US (occurrence: US)
  Receive Date: 20220204
  Receipt Date: 20220204
  Transmission Date: 20220423
  Serious: Yes (Life-Threatening, Hospitalization, Other)
  Sender: FDA-Public Use
  Company Number: US-MLMSERVICE-20220120-3327532-1

PATIENT
  Age: 74 Year
  Sex: Female
  Weight: 80.88 kg

DRUGS (10)
  1. FUROSEMIDE [Suspect]
     Active Substance: FUROSEMIDE
     Indication: Diuretic therapy
  2. DILTIAZEM [Concomitant]
     Active Substance: DILTIAZEM
  3. CARVEDILOL [Concomitant]
     Active Substance: CARVEDILOL
  4. LEVOTHYROXINE [Concomitant]
     Active Substance: LEVOTHYROXINE
  5. INSULIN GLARGINE [Concomitant]
     Active Substance: INSULIN GLARGINE
  6. SACUBITRIL [Concomitant]
     Active Substance: SACUBITRIL
  7. SIMVASTATIN [Concomitant]
     Active Substance: SIMVASTATIN
  8. APIXABAN [Concomitant]
     Active Substance: APIXABAN
  9. GLIMEPIRIDE [Concomitant]
     Active Substance: GLIMEPIRIDE
  10. VALSARTAN [Concomitant]
     Active Substance: VALSARTAN

REACTIONS (5)
  - Cushing^s syndrome [Unknown]
  - Ectopic ACTH syndrome [Unknown]
  - Metabolic alkalosis [Unknown]
  - Fall [Unknown]
  - Respiratory acidosis [Unknown]

NARRATIVE: CASE EVENT DATE: 20201201
